FAERS Safety Report 9325831 (Version 2)
Quarter: 2013Q2

REPORT INFORMATION
  Report Type: Spontaneous
  Country: DE (occurrence: DE)
  Receive Date: 20130604
  Receipt Date: 20130612
  Transmission Date: 20140414
  Serious: Yes (Other)
  Sender: FDA-Public Use
  Company Number: DE-JNJFOC-20130521065

PATIENT
  Age: 56 Year
  Sex: Female
  Weight: 77 kg

DRUGS (2)
  1. DOXORUBICIN HYDROCHLORIDE(CAELYX) [Suspect]
     Indication: BREAST CANCER
     Dosage: ABSOLUTE DOSE OF 72 MG IN GLUCOSE SOLUTION FOR 180 MINUTES
     Route: 042
     Dates: start: 20130523, end: 20130523
  2. DOXORUBICIN HYDROCHLORIDE(CAELYX) [Suspect]
     Indication: BREAST CANCER
     Route: 042
     Dates: start: 20130523

REACTIONS (4)
  - Blood pressure increased [Recovering/Resolving]
  - Flushing [Recovering/Resolving]
  - Nausea [Recovering/Resolving]
  - Dyspnoea [Recovering/Resolving]
